FAERS Safety Report 10517259 (Version 1)
Quarter: 2014Q4

REPORT INFORMATION
  Report Type: Spontaneous
  Country: US (occurrence: US)
  Receive Date: 20141014
  Receipt Date: 20141014
  Transmission Date: 20150528
  Serious: No
  Sender: FDA-Public Use
  Company Number: US-BAXTER-2014BAX060303

PATIENT
  Sex: Female

DRUGS (7)
  1. METOLAZONE. [Suspect]
     Active Substance: METOLAZONE
     Indication: URINE OUTPUT DECREASED
     Route: 048
     Dates: start: 201408, end: 20140925
  2. METOLAZONE. [Suspect]
     Active Substance: METOLAZONE
     Indication: FLUID OVERLOAD
  3. DIANEAL LOW CALCIUM PERITONEAL DIALYSIS SOLUTION WITH DEXTROSE [Suspect]
     Active Substance: CALCIUM CHLORIDE\DEXTROSE\MAGNESIUM CHLORIDE\SODIUM CHLORIDE\SODIUM LACTATE
     Indication: CHRONIC KIDNEY DISEASE
     Route: 033
     Dates: start: 20131003
  4. DIANEAL PD-2 WITH DEXTROSE [Suspect]
     Active Substance: CALCIUM CHLORIDE\DEXTROSE MONOHYDRATE\MAGNESIUM CHLORIDE\SODIUM CHLORIDE\SODIUM LACTATE
     Indication: PERITONEAL DIALYSIS
     Route: 033
     Dates: start: 20131003
  5. DIANEAL LOW CALCIUM PERITONEAL DIALYSIS SOLUTION WITH DEXTROSE [Suspect]
     Active Substance: CALCIUM CHLORIDE\DEXTROSE\MAGNESIUM CHLORIDE\SODIUM CHLORIDE\SODIUM LACTATE
     Indication: CHRONIC KIDNEY DISEASE
     Route: 033
     Dates: start: 20131003
  6. TORSEMIDE. [Suspect]
     Active Substance: TORSEMIDE
     Indication: PRODUCT USED FOR UNKNOWN INDICATION
     Route: 048
  7. DIANEAL PD-2 WITH DEXTROSE [Suspect]
     Active Substance: CALCIUM CHLORIDE\DEXTROSE MONOHYDRATE\MAGNESIUM CHLORIDE\SODIUM CHLORIDE\SODIUM LACTATE
     Indication: PERITONEAL DIALYSIS
     Route: 033
     Dates: start: 20131003

REACTIONS (10)
  - Skin disorder [Unknown]
  - Dehydration [Unknown]
  - Fluid overload [Recovering/Resolving]
  - Urine output decreased [Recovering/Resolving]
  - Adverse drug reaction [Unknown]
  - Potentiating drug interaction [Recovering/Resolving]
  - Disease complication [Unknown]
  - Electrolyte imbalance [Recovering/Resolving]
  - Hypocalcaemia [Recovering/Resolving]
  - Blood magnesium decreased [Recovering/Resolving]

NARRATIVE: CASE EVENT DATE: 201409
